FAERS Safety Report 5125774-6 (Version None)
Quarter: 2006Q4

REPORT INFORMATION
  Report Type: 
  Country: None (occurrence: None)
  Receive Date: 20061010
  Receipt Date: 20061010
  Transmission Date: 20070319
  Serious: Yes (Hospitalization)
  Sender: FDA-Public Use
  Company Number: None

PATIENT
  Age: 46 Year
  Sex: Female
  Weight: 81.6475 kg

DRUGS (1)
  1. VICODIN [Suspect]
     Dosage: 1 TO 2 TAB HS Q6H PO
     Route: 048

REACTIONS (2)
  - CONVULSION [None]
  - URTICARIA [None]
